FAERS Safety Report 4850034-8 (Version None)
Quarter: 2005Q4

REPORT INFORMATION
  Report Type: 
  Country: None (occurrence: None)
  Receive Date: 20051123
  Receipt Date: 20041108
  Transmission Date: 20060501
  Serious: Yes (Other)
  Sender: FDA-Public Use
  Company Number: 2004090412

PATIENT
  Age: 81 Year
  Sex: Female

DRUGS (5)
  1. LIPITOR [Suspect]
     Indication: ILL-DEFINED DISORDER
     Dosage: 80 MG
  2. KETOCONAZOLE [Suspect]
     Indication: ILL-DEFINED DISORDER
  3. ITRACONAZOLE [Suspect]
     Indication: ILL-DEFINED DISORDER
  4. WARFARIN (WARFARIN) [Suspect]
     Indication: ILL-DEFINED DISORDER
  5. GEMFIBROZIL [Suspect]
     Indication: ILL-DEFINED DISORDER

REACTIONS (1)
  - RHABDOMYOLYSIS [None]
